FAERS Safety Report 9787954 (Version 4)
Quarter: 2014Q1

REPORT INFORMATION
  Report Type: Spontaneous
  Country: JP (occurrence: JP)
  Receive Date: 20131230
  Receipt Date: 20140214
  Transmission Date: 20141002
  Serious: Yes (Hospitalization)
  Sender: FDA-Public Use
  Company Number: JP-ASTELLAS-2013JP014094

PATIENT
  Age: 59 Year
  Sex: Female
  Weight: 49 kg

DRUGS (24)
  1. PROGRAF [Suspect]
     Indication: INTERSTITIAL LUNG DISEASE
     Dosage: 2 MG, BID
     Route: 048
     Dates: start: 20131015, end: 20131218
  2. PROGRAF [Suspect]
     Indication: DERMATOMYOSITIS
     Dosage: 1.5 MG, BID
     Route: 048
     Dates: start: 20131219
  3. MEDROL /00049601/ [Suspect]
     Indication: INTERSTITIAL LUNG DISEASE
     Dosage: UNK
     Route: 048
     Dates: start: 201205, end: 20131014
  4. MEDROL /00049601/ [Suspect]
     Indication: DERMATOMYOSITIS
     Dosage: 40 MG, UNKNOWN/D
     Route: 048
     Dates: start: 20131015, end: 20131107
  5. MEDROL /00049601/ [Suspect]
     Dosage: 36 MG, UNKNOWN/D
     Route: 048
     Dates: start: 20131108, end: 20131121
  6. MEDROL /00049601/ [Suspect]
     Dosage: 32 MG, UNKNOWN/D
     Route: 048
     Dates: start: 20131122, end: 20131205
  7. MEDROL /00049601/ [Suspect]
     Dosage: 28 MG, UNKNOWN/D
     Route: 048
     Dates: start: 20131206, end: 20131219
  8. MEDROL /00049601/ [Suspect]
     Dosage: 26 MG, UNKNOWN/D
     Route: 048
     Dates: start: 20131220, end: 20140102
  9. MEDROL /00049601/ [Suspect]
     Dosage: 24 MG, UNKNOWN/D
     Route: 048
     Dates: start: 20140103, end: 20140116
  10. MEDROL /00049601/ [Suspect]
     Dosage: 22 MG, UNKNOWN/D
     Route: 048
     Dates: start: 20140117
  11. ONEALFA [Concomitant]
     Indication: DERMATOMYOSITIS
     Dosage: 0.5 UG, UID/QD
     Route: 048
     Dates: start: 201205
  12. BONALON [Concomitant]
     Indication: DERMATOMYOSITIS
     Dosage: 35 MG, WEEKLY
     Route: 048
     Dates: start: 201205
  13. BAKTAR [Concomitant]
     Indication: DERMATOMYOSITIS
     Dosage: 1 DF, UID/QD
     Route: 048
     Dates: start: 201205
  14. SEIBULE [Concomitant]
     Indication: DIABETES MELLITUS
     Dosage: 50 MG, UID/QD
     Route: 048
     Dates: start: 201206
  15. URSO                               /00465701/ [Concomitant]
     Indication: AUTOIMMUNE HEPATITIS
     Dosage: 200 MG, TID
     Route: 048
  16. MAGLAX [Concomitant]
     Indication: CONSTIPATION
     Dosage: 330 MG, BID
     Route: 048
     Dates: start: 201206
  17. LASIX                              /00032601/ [Concomitant]
     Indication: OEDEMA PERIPHERAL
     Dosage: 20 MG, UID/QD
     Route: 048
     Dates: start: 201306, end: 20131213
  18. GASTER [Concomitant]
     Indication: DERMATOMYOSITIS
     Dosage: 20 MG, BID
     Route: 048
     Dates: start: 201004, end: 20131213
  19. GASTER [Concomitant]
     Indication: AUTOIMMUNE HEPATITIS
  20. AZATHIOPRINE [Concomitant]
     Dosage: 50 MG, UID/QD
     Route: 048
     Dates: end: 20131015
  21. IMIDAPRIL HYDROCHLORIDE [Concomitant]
     Indication: PROPHYLAXIS
     Dosage: 5 MG, UNKNOWN/D
     Route: 048
     Dates: start: 20131211, end: 20131226
  22. IMIDAPRIL HYDROCHLORIDE [Concomitant]
     Dosage: 2.5 MG, UNKNOWN/D
     Route: 048
     Dates: start: 20131227
  23. AZOSEMIDE [Concomitant]
     Indication: PROPHYLAXIS
     Dosage: 30 MG, UNKNOWN/D
     Route: 048
     Dates: start: 20131211, end: 20140116
  24. AZOSEMIDE [Concomitant]
     Dosage: 60 MG, UNKNOWN/D
     Route: 048
     Dates: start: 20140117

REACTIONS (4)
  - Brain natriuretic peptide increased [Not Recovered/Not Resolved]
  - Ventricular hypertrophy [Not Recovered/Not Resolved]
  - Ventricular hypokinesia [Not Recovered/Not Resolved]
  - Gastric ulcer [Unknown]
